FAERS Safety Report 10916242 (Version 1)
Quarter: 2015Q1

REPORT INFORMATION
  Report Type: Spontaneous
  Country: BR (occurrence: BR)
  Receive Date: 20150316
  Receipt Date: 20150316
  Transmission Date: 20150721
  Serious: Yes (Death, Hospitalization)
  Sender: FDA-Public Use
  Company Number: PHHY2015BR026415

PATIENT
  Age: 67 Year
  Sex: Male

DRUGS (8)
  1. MIDAZOLAM [Suspect]
     Active Substance: MIDAZOLAM\MIDAZOLAM HYDROCHLORIDE
     Indication: MUSCLE SPASMS
     Route: 065
  2. TETANUS IMMUNOGLOBULIN [Suspect]
     Active Substance: HUMAN CLOSTRIDIUM TETANI TOXOID IMMUNE GLOBULIN
     Indication: TETANUS
     Route: 065
  3. BACLOFEN. [Suspect]
     Active Substance: BACLOFEN
     Indication: TETANUS
     Route: 065
  4. METRONIDAZOLE. [Suspect]
     Active Substance: METRONIDAZOLE
     Indication: TETANUS
     Dosage: 1.5 MG, QD
     Route: 042
  5. CLINDAMYCIN [Suspect]
     Active Substance: CLINDAMYCIN\CLINDAMYCIN PHOSPHATE
     Indication: TETANUS
     Route: 065
  6. CEFTRIAXONE. [Suspect]
     Active Substance: CEFTRIAXONE
     Indication: TETANUS
     Dosage: 2 G, UNK
     Route: 065
  7. DIAZEPAM. [Suspect]
     Active Substance: DIAZEPAM
     Indication: TETANUS
     Route: 065
  8. PENICILLIN CRYSTALLINE [Suspect]
     Active Substance: PENICILLIN G SODIUM
     Indication: TETANUS
     Route: 065

REACTIONS (15)
  - Muscle contracture [None]
  - Hyperglycaemia [None]
  - Condition aggravated [Unknown]
  - Septic shock [Fatal]
  - Haemodynamic instability [None]
  - Respiratory alkalosis [None]
  - Soft tissue infection [None]
  - Metabolic acidosis [None]
  - Hepatic enzyme increased [None]
  - Tetanus [Unknown]
  - Drug ineffective [Unknown]
  - Muscle spasms [Unknown]
  - Soft tissue necrosis [None]
  - Acute kidney injury [None]
  - Hypoxia [None]
